FAERS Safety Report 5597243-0 (Version None)
Quarter: 2007Q4

REPORT INFORMATION
  Report Type: 
  Country: None (occurrence: None)
  Receive Date: 20071221
  Receipt Date: 20071001
  Transmission Date: 20080405
  Serious: No
  Sender: FDA-Public Use
  Company Number: SPV1-2007-04364

PATIENT
  Age: 33 Year
  Sex: Male

DRUGS (2)
  1. VYVANSE [Suspect]
     Dosage: 70 MG, 1X/DAY:QD, ORAL
     Route: 048
     Dates: start: 20070928, end: 20071001
  2. LAMICTAL [Concomitant]

REACTIONS (2)
  - HEART RATE INCREASED [None]
  - OFF LABEL USE [None]
